FAERS Safety Report 5730666-5 (Version None)
Quarter: 2008Q2

REPORT INFORMATION
  Report Type: 
  Country: None (occurrence: None)
  Receive Date: 20080507
  Receipt Date: 20080502
  Transmission Date: 20081010
  Serious: Yes (Other)
  Sender: FDA-Public Use
  Company Number: AU-ASTRAZENECA-2008AP03387

PATIENT
  Age: 22616 Day
  Sex: Female
  Weight: 46 kg

DRUGS (3)
  1. ARIMIDEX [Suspect]
     Indication: BREAST CANCER
     Route: 048
     Dates: start: 20061115
  2. CYCLOPHOSPHAMIDE [Suspect]
     Route: 048
  3. EPIRUBICIN HYDROCHLORIDE [Suspect]
     Dates: start: 20060515, end: 20061115

REACTIONS (2)
  - CARDIOMYOPATHY [None]
  - LEFT VENTRICULAR DYSFUNCTION [None]
